FAERS Safety Report 9402698 (Version 2)
Quarter: 2013Q3

REPORT INFORMATION
  Report Type: Spontaneous
  Country: FR (occurrence: FR)
  Receive Date: 20130716
  Receipt Date: 20130729
  Transmission Date: 20140515
  Serious: Yes (Hospitalization, Disabling, Other)
  Sender: FDA-Public Use
  Company Number: FR-ASTELLAS-2013US007400

PATIENT
  Age: 52 Year
  Sex: Male

DRUGS (14)
  1. TARCEVA [Suspect]
     Indication: LUNG NEOPLASM MALIGNANT
     Dosage: 150 MG, UID/QD
     Route: 048
     Dates: start: 201302, end: 20130521
  2. TARCEVA [Suspect]
     Indication: BRONCHIAL CARCINOMA
  3. ATARAX                             /00058401/ [Concomitant]
     Indication: PRODUCT USED FOR UNKNOWN INDICATION
     Dosage: 1 DF, UID/QD
     Route: 065
  4. DANATROL [Concomitant]
     Indication: PRODUCT USED FOR UNKNOWN INDICATION
     Dosage: 3 DF, UID/QD
     Route: 065
  5. INEXIUM                            /01479302/ [Concomitant]
     Indication: PRODUCT USED FOR UNKNOWN INDICATION
     Dosage: 1 DF, UID/QD
     Route: 065
  6. CORTANCYL [Concomitant]
     Indication: PRODUCT USED FOR UNKNOWN INDICATION
     Dosage: 0.5 DF, UID/QD
     Route: 065
  7. CORTANCYL [Concomitant]
     Dosage: UNK
     Route: 065
  8. DOXYCYCLINE [Concomitant]
     Indication: PRODUCT USED FOR UNKNOWN INDICATION
     Dosage: 1 DF, UID/QD
     Route: 065
  9. DOLIPRANE [Concomitant]
     Indication: PAIN
     Dosage: UNK/PRN
     Route: 065
  10. DIFFU K [Concomitant]
     Indication: PRODUCT USED FOR UNKNOWN INDICATION
     Dosage: 3 DF, UID/QD
     Route: 065
  11. DIFFU K [Concomitant]
     Dosage: 2 DF, UID/QD
     Route: 065
  12. PARACETAMOL [Concomitant]
     Indication: PRODUCT USED FOR UNKNOWN INDICATION
     Dosage: 1 G, QID
     Route: 065
  13. OXYNORMORO [Concomitant]
     Indication: PAIN
     Dosage: 6 TABLETS DAILY
     Route: 065
  14. LYRICA [Concomitant]
     Indication: PRODUCT USED FOR UNKNOWN INDICATION
     Dosage: 25 DF, BID
     Route: 065

REACTIONS (5)
  - Haemoptysis [Unknown]
  - Intercostal neuralgia [Unknown]
  - Malnutrition [Unknown]
  - Interstitial lung disease [Not Recovered/Not Resolved]
  - Rash [Unknown]
